FAERS Safety Report 24694983 (Version 1)
Quarter: 2024Q4

REPORT INFORMATION
  Report Type: Spontaneous
  Country: US (occurrence: None)
  Receive Date: 20241203
  Receipt Date: 20241203
  Transmission Date: 20250115
  Serious: Yes (Life-Threatening, Hospitalization)
  Sender: Public
  Company Number: None

PATIENT
  Age: 37 Year
  Sex: Female
  Weight: 67.59 kg

DRUGS (1)
  1. SOTYKTU [Suspect]
     Active Substance: DEUCRAVACITINIB
     Indication: Psoriasis
     Dosage: FREQUENCY : DAILY;?
     Route: 048
     Dates: start: 20241113, end: 20241115

REACTIONS (2)
  - Pneumonia [None]
  - Sepsis [None]

NARRATIVE: CASE EVENT DATE: 20241116
